FAERS Safety Report 25847638 (Version 3)
Quarter: 2025Q4

REPORT INFORMATION
  Report Type: Spontaneous
  Country: CO (occurrence: CO)
  Receive Date: 20250925
  Receipt Date: 20251117
  Transmission Date: 20260117
  Serious: No
  Sender: PFIZER
  Company Number: CO-PFIZER INC-PV202500113924

PATIENT
  Age: 13 Year
  Sex: Female
  Weight: 47 kg

DRUGS (1)
  1. GENOTROPIN [Suspect]
     Active Substance: SOMATROPIN
     Indication: Short stature
     Dosage: 1.2 MG, DAILY

REACTIONS (3)
  - Device use issue [Unknown]
  - Device information output issue [Unknown]
  - Off label use [Unknown]
